FAERS Safety Report 7053415-X (Version None)
Quarter: 2010Q4

REPORT INFORMATION
  Report Type: 
  Country: None (occurrence: None)
  Receive Date: 20101020
  Receipt Date: 20101008
  Transmission Date: 20110411
  Serious: Yes (Other)
  Sender: FDA-Public Use
  Company Number: PHEH2010US03455

PATIENT
  Sex: Female

DRUGS (9)
  1. ELIDEL [Suspect]
     Route: 061
  2. ANTIDEPRESSANTS [Concomitant]
  3. PROCHLORPERAZINE MALEATE [Concomitant]
  4. CALCIUM [Concomitant]
  5. MULTI-VITAMINS [Concomitant]
  6. VITAMIN B COMPLEX CAP [Concomitant]
  7. CELEXA [Concomitant]
  8. ESTROGEN NOS [Concomitant]
     Route: 061
  9. LORTAB [Concomitant]

REACTIONS (56)
  - ACTINIC KERATOSIS [None]
  - ACUTE SINUSITIS [None]
  - ARTHRALGIA [None]
  - ATELECTASIS [None]
  - ATROPHIC VULVOVAGINITIS [None]
  - AURICULAR PSEUDOCYST [None]
  - BACK PAIN [None]
  - BREAST CANCER [None]
  - BREAST LUMP REMOVAL [None]
  - BRONCHITIS [None]
  - CERVICAL CYST [None]
  - COUGH [None]
  - DERMATITIS [None]
  - DRUG ERUPTION [None]
  - DYSPLASTIC NAEVUS SYNDROME [None]
  - DYSPNOEA [None]
  - ECZEMA [None]
  - ERYTHEMA [None]
  - FATIGUE [None]
  - FREQUENT BOWEL MOVEMENTS [None]
  - HEPATIC STEATOSIS [None]
  - HODGKIN'S DISEASE [None]
  - HYPERGLYCAEMIA [None]
  - HYPERSENSITIVITY [None]
  - INTERTRIGO [None]
  - IRRITABLE BOWEL SYNDROME [None]
  - KYPHOSCOLIOSIS [None]
  - LIBIDO DECREASED [None]
  - LYMPHADENECTOMY [None]
  - LYMPHADENOPATHY [None]
  - METASTATIC NEOPLASM [None]
  - MOLE EXCISION [None]
  - NASAL CONGESTION [None]
  - NASAL DISCOMFORT [None]
  - NECK PAIN [None]
  - NEURITIS [None]
  - ONYCHOMYCOSIS [None]
  - OSTEOARTHRITIS [None]
  - PARONYCHIA [None]
  - PLANTAR FASCIITIS [None]
  - PSORIASIS [None]
  - RASH PRURITIC [None]
  - SEBORRHOEIC DERMATITIS [None]
  - SEBORRHOEIC KERATOSIS [None]
  - SKIN DISCOLOURATION [None]
  - SKIN FIBROSIS [None]
  - SKIN LACERATION [None]
  - SKIN LESION [None]
  - SKIN OEDEMA [None]
  - SKIN PAPILLOMA [None]
  - SNEEZING [None]
  - SNORING [None]
  - TENDONITIS [None]
  - UPPER RESPIRATORY TRACT INFECTION [None]
  - UPPER-AIRWAY COUGH SYNDROME [None]
  - URTICARIA [None]
